FAERS Safety Report 4587133-4 (Version None)
Quarter: 2005Q1

REPORT INFORMATION
  Report Type: 
  Country: None (occurrence: None)
  Receive Date: 20050218
  Receipt Date: 20050209
  Transmission Date: 20050727
  Serious: Yes (Hospitalization)
  Sender: FDA-Public Use
  Company Number: US-BRISTOL-MYERS SQUIBB COMPANY-12856290

PATIENT
  Age: 60 Year
  Sex: Male
  Weight: 73 kg

DRUGS (3)
  1. CISPLATIN [Suspect]
     Indication: SMALL CELL LUNG CANCER STAGE UNSPECIFIED
     Dosage: 1ST DOSE: 23AUG01
     Route: 042
     Dates: start: 20011205, end: 20011205
  2. ETOPOSIDE [Suspect]
     Indication: SMALL CELL LUNG CANCER STAGE UNSPECIFIED
     Dosage: 1ST DOSE: 23AUG01
     Route: 042
     Dates: start: 20011205, end: 20011207
  3. DURAGESIC [Concomitant]
     Indication: PAIN
     Dates: start: 20010912, end: 20011212

REACTIONS (2)
  - ASTHENIA [None]
  - DYSPHAGIA [None]
